FAERS Safety Report 18193008 (Version 2)
Quarter: 2020Q3

REPORT INFORMATION
  Report Type: Spontaneous
  Country: DE (occurrence: DE)
  Receive Date: 20200825
  Receipt Date: 20200827
  Transmission Date: 20201103
  Serious: Yes (Other)
  Sender: FDA-Public Use
  Company Number: DE-BIOGEN-2020BI00914573

PATIENT
  Sex: Female

DRUGS (1)
  1. TECFIDERA [Suspect]
     Active Substance: DIMETHYL FUMARATE
     Indication: PATERNAL EXPOSURE TIMING UNSPECIFIED
     Route: 064
     Dates: start: 2014, end: 2019

REACTIONS (2)
  - Paternal exposure before pregnancy [Unknown]
  - Neonatal diabetes mellitus [Not Recovered/Not Resolved]
